FAERS Safety Report 7970145-8 (Version None)
Quarter: 2011Q4

REPORT INFORMATION
  Report Type: 
  Country: None (occurrence: None)
  Receive Date: 20111122
  Receipt Date: 20110822
  Transmission Date: 20120403
  Serious: No
  Sender: FDA-Public Use
  Company Number: PHHY2011US42346

PATIENT
  Age: 50 Year
  Sex: Female
  Weight: 93 kg

DRUGS (2)
  1. GILENYA [Suspect]
     Indication: MULTIPLE SCLEROSIS
     Dosage: 0.5 MG, QD, ORAL; 2 DF, UNK, ORAL
     Route: 048
     Dates: start: 20110811, end: 20110811
  2. GILENYA [Suspect]
     Indication: MULTIPLE SCLEROSIS
     Dosage: 0.5 MG, QD, ORAL; 2 DF, UNK, ORAL
     Route: 048
     Dates: start: 20110510

REACTIONS (4)
  - DIARRHOEA [None]
  - FATIGUE [None]
  - OVERDOSE [None]
  - COGNITIVE DISORDER [None]
